FAERS Safety Report 18177710 (Version 1)
Quarter: 2020Q3

REPORT INFORMATION
  Report Type: Other
  Country: JP (occurrence: JP)
  Receive Date: 20200821
  Receipt Date: 20200821
  Transmission Date: 20201103
  Serious: Yes (Other)
  Sender: FDA-Public Use
  Company Number: JP-ROCHE-2662618

PATIENT
  Age: 73 Year
  Sex: Male

DRUGS (5)
  1. LEUCOVORIN. [Suspect]
     Active Substance: LEUCOVORIN
     Indication: COLORECTAL CANCER METASTATIC
     Dosage: INFUSED OVER THE COURSE OF 2 HOURS
     Route: 042
     Dates: start: 201804
  2. BEVACIZUMAB. [Suspect]
     Active Substance: BEVACIZUMAB
     Indication: COLORECTAL CANCER METASTATIC
     Dosage: DAY 1
     Route: 042
     Dates: start: 201804
  3. FLUOROURACIL. [Suspect]
     Active Substance: FLUOROURACIL
     Indication: COLORECTAL CANCER METASTATIC
     Dosage: CONTINUOUS 46?HOUR INFUSION ON DAY 1
     Route: 042
     Dates: start: 201804
  4. OXALIPLATIN. [Suspect]
     Active Substance: OXALIPLATIN
     Indication: COLORECTAL CANCER METASTATIC
     Dosage: INFUSED OVER THE COURSE OF 2 HOURS
     Route: 042
     Dates: start: 201804
  5. IRINOTECAN [Suspect]
     Active Substance: IRINOTECAN
     Indication: COLORECTAL CANCER METASTATIC
     Dosage: OVER THE COURSE OF 1 HOUR ON DAY 1
     Route: 042
     Dates: start: 201804

REACTIONS (6)
  - Decreased appetite [Unknown]
  - Vomiting [Unknown]
  - Pollakiuria [Unknown]
  - Ascites [Unknown]
  - Oedema [Unknown]
  - Nausea [Unknown]
